FAERS Safety Report 5902482-2 (Version None)
Quarter: 2008Q3

REPORT INFORMATION
  Report Type: 
  Country: None (occurrence: None)
  Receive Date: 20080929
  Receipt Date: 20080924
  Transmission Date: 20090109
  Serious: Yes (Death)
  Sender: FDA-Public Use
  Company Number: JP-ASTRAZENECA-2008AP07504

PATIENT
  Age: 63 Year
  Sex: Male
  Weight: 51 kg

DRUGS (7)
  1. IRESSA [Suspect]
     Indication: LUNG ADENOCARCINOMA
     Route: 048
     Dates: start: 20080623, end: 20080629
  2. CLARITHROMYCIN [Concomitant]
     Indication: ANTIBIOTIC PROPHYLAXIS
     Dosage: NUMBER OF SEPARATE DOSAGES UNKNOWN
     Route: 048
     Dates: start: 20080524, end: 20080701
  3. CODEINE PHOSPHATE [Concomitant]
     Indication: COUGH
     Route: 048
     Dates: start: 20080606, end: 20080628
  4. LASIX [Concomitant]
     Indication: POLYURIA
     Route: 048
     Dates: start: 20080602, end: 20080612
  5. LASIX [Concomitant]
     Route: 048
     Dates: start: 20080617, end: 20080623
  6. ESPO SUBCUTANEOUS INJECTION [Concomitant]
     Indication: ANAEMIA
     Route: 058
     Dates: start: 20080625, end: 20080625
  7. HANP [Concomitant]
     Indication: POLYURIA
     Dosage: DOSE UNKNOWN
     Route: 042
     Dates: start: 20080626, end: 20080704

REACTIONS (2)
  - ACUTE RESPIRATORY FAILURE [None]
  - RENAL FAILURE [None]
